FAERS Safety Report 12325102 (Version 6)
Quarter: 2016Q2

REPORT INFORMATION
  Report Type: Spontaneous
  Country: JP (occurrence: JP)
  Receive Date: 20160502
  Receipt Date: 20160517
  Transmission Date: 20160815
  Serious: Yes (Hospitalization, Other)
  Sender: FDA-Public Use
  Company Number: PHJP2016JP011040

PATIENT
  Age: 44 Year
  Sex: Male

DRUGS (1)
  1. DICLOFENAC [Suspect]
     Active Substance: DICLOFENAC
     Indication: PYREXIA
     Dosage: UNK
     Route: 048

REACTIONS (9)
  - Wheezing [Recovering/Resolving]
  - Asthma [Recovering/Resolving]
  - Aspirin-exacerbated respiratory disease [Recovering/Resolving]
  - Chest pain [Recovering/Resolving]
  - Altered state of consciousness [Recovering/Resolving]
  - Respiratory failure [Recovering/Resolving]
  - Seizure [Recovered/Resolved]
  - Dyspnoea [Recovering/Resolving]
  - Respiratory rate decreased [Recovering/Resolving]
